FAERS Safety Report 19163970 (Version 1)
Quarter: 2021Q2

REPORT INFORMATION
  Report Type: Spontaneous
  Country: CA (occurrence: CA)
  Receive Date: 20210421
  Receipt Date: 20210421
  Transmission Date: 20210717
  Serious: Yes (Other)
  Sender: FDA-Public Use
  Company Number: CA-GLAXOSMITHKLINE-CACH2021GSK016543

PATIENT
  Age: 19 Year
  Sex: Female

DRUGS (58)
  1. CAPSICUM OLEORESIN [Suspect]
     Active Substance: CAPSICUM OLEORESIN
  2. TOPIRAMATE. [Suspect]
     Active Substance: TOPIRAMATE
     Indication: COMPLEX REGIONAL PAIN SYNDROME
     Dosage: UNK
  3. ACETAMINOPHEN. [Suspect]
     Active Substance: ACETAMINOPHEN
     Indication: COMPLEX REGIONAL PAIN SYNDROME
     Dosage: UNK
  4. AMITRIPTYLINE [Suspect]
     Active Substance: AMITRIPTYLINE
     Indication: COMPLEX REGIONAL PAIN SYNDROME
     Dosage: 50 MG
  5. AMITRIPTYLINE [Suspect]
     Active Substance: AMITRIPTYLINE
     Dosage: 50 MG
  6. CLONIDINE. [Suspect]
     Active Substance: CLONIDINE
     Indication: COMPLEX REGIONAL PAIN SYNDROME
     Dosage: UNK
  7. DESIPRAMINE [Suspect]
     Active Substance: DESIPRAMINE
     Indication: COMPLEX REGIONAL PAIN SYNDROME
     Dosage: UNK
  8. GABAPENTIN. [Suspect]
     Active Substance: GABAPENTIN
     Indication: COMPLEX REGIONAL PAIN SYNDROME
     Dosage: UNK
  9. APO?TRAMADOL [Suspect]
     Active Substance: TRAMADOL
     Indication: COMPLEX REGIONAL PAIN SYNDROME
     Dosage: UNK
  10. RAVENSARA AROMATICA [Suspect]
     Active Substance: HERBALS
     Indication: COMPLEX REGIONAL PAIN SYNDROME
     Dosage: UNK
  11. ROSEMARY OIL [Suspect]
     Active Substance: ROSEMARY OIL
     Indication: COMPLEX REGIONAL PAIN SYNDROME
     Dosage: UNK
     Route: 055
  12. OXCARBAZEPINE. [Suspect]
     Active Substance: OXCARBAZEPINE
     Indication: COMPLEX REGIONAL PAIN SYNDROME
     Dosage: UNK
  13. PREGABALIN. [Suspect]
     Active Substance: PREGABALIN
     Indication: COMPLEX REGIONAL PAIN SYNDROME
     Dosage: 300 MG 150 MG,1 IN 12 HR
  14. PREGABALIN. [Suspect]
     Active Substance: PREGABALIN
     Dosage: 100 MG, 50 MG,1 IN 12 HR
  15. VENLAFAXINE [Suspect]
     Active Substance: VENLAFAXINE HYDROCHLORIDE
     Indication: COMPLEX REGIONAL PAIN SYNDROME
     Dosage: UNK
  16. DICLOFENAC [Suspect]
     Active Substance: DICLOFENAC
     Indication: COMPLEX REGIONAL PAIN SYNDROME
     Dosage: UNK, (OPHTHALMIC SOLUTION)
  17. MEMANTINE HYDROCHLORIDE. [Suspect]
     Active Substance: MEMANTINE HYDROCHLORIDE
     Indication: COMPLEX REGIONAL PAIN SYNDROME
     Dosage: UNK
  18. PREGABALIN. [Suspect]
     Active Substance: PREGABALIN
     Dosage: 100 MG
  19. CAPSAICIN. [Suspect]
     Active Substance: CAPSAICIN
     Indication: COMPLEX REGIONAL PAIN SYNDROME
     Dosage: UNK
  20. FENTANYL. [Suspect]
     Active Substance: FENTANYL
     Dosage: UNK, (1 IN 3 D)
     Route: 062
  21. KETAMINE [Suspect]
     Active Substance: KETAMINE
     Dosage: UNK
     Route: 042
  22. METHADONE [Suspect]
     Active Substance: METHADONE HYDROCHLORIDE
     Indication: COMPLEX REGIONAL PAIN SYNDROME
     Dosage: UNK
  23. OXYCODONE [Suspect]
     Active Substance: OXYCODONE
     Dosage: 30 MG, 10 MG,1 IN 8 HR
  24. OXYCODONE [Suspect]
     Active Substance: OXYCODONE
     Dosage: 240 MG (80 MG,1 IN 8 HR)
  25. OXYCODONE [Suspect]
     Active Substance: OXYCODONE
     Dosage: 120 MG 60 MG,1 IN 12 HR
  26. CITRUS AURANTIUM [Suspect]
     Active Substance: HERBALS
     Indication: COMPLEX REGIONAL PAIN SYNDROME
     Dosage: UNK
  27. LAVENDER OIL [Suspect]
     Active Substance: LAVENDER OIL
     Indication: COMPLEX REGIONAL PAIN SYNDROME
     Dosage: UNK
  28. IBUPROFEN. [Suspect]
     Active Substance: IBUPROFEN
     Indication: COMPLEX REGIONAL PAIN SYNDROME
     Dosage: UNK
  29. VENLAFAXINE HYDROCHLORIDE. [Suspect]
     Active Substance: VENLAFAXINE HYDROCHLORIDE
     Indication: COMPLEX REGIONAL PAIN SYNDROME
     Dosage: UNK
  30. AMITRIPTYLINE [Suspect]
     Active Substance: AMITRIPTYLINE
     Dosage: 150 MG
  31. EMLA [Suspect]
     Active Substance: LIDOCAINE\PRILOCAINE
     Indication: PRODUCT USED FOR UNKNOWN INDICATION
     Dosage: UNK
  32. KETAMINE [Suspect]
     Active Substance: KETAMINE
     Dosage: UNK
     Route: 048
  33. NAPROXEN. [Suspect]
     Active Substance: NAPROXEN
     Indication: COMPLEX REGIONAL PAIN SYNDROME
     Dosage: UNK
  34. OXYCODONE [Suspect]
     Active Substance: OXYCODONE
     Indication: COMPLEX REGIONAL PAIN SYNDROME
     Dosage: 240 MG (120 MG,1 IN 12 HR)
  35. CELECOXIB. [Suspect]
     Active Substance: CELECOXIB
     Indication: COMPLEX REGIONAL PAIN SYNDROME
     Dosage: UNK
  36. FENTANYL. [Suspect]
     Active Substance: FENTANYL
     Dosage: UNK
     Route: 062
  37. MEXILETINE [Suspect]
     Active Substance: MEXILETINE
     Indication: COMPLEX REGIONAL PAIN SYNDROME
     Dosage: UNK
  38. OXYCODONE [Suspect]
     Active Substance: OXYCODONE
     Dosage: 50 MG
  39. LIDOCAINE + PRILOCAINE HYDROCHLORIDE [Suspect]
     Active Substance: LIDOCAINE\PRILOCAINE HYDROCHLORIDE
     Indication: COMPLEX REGIONAL PAIN SYNDROME
     Dosage: UNK
  40. DEXTROMETHORPHAN HYDROBROMIDE. [Suspect]
     Active Substance: DEXTROMETHORPHAN HYDROBROMIDE
     Indication: COMPLEX REGIONAL PAIN SYNDROME
     Dosage: UNK
  41. CODEINE [Suspect]
     Active Substance: CODEINE
     Indication: COMPLEX REGIONAL PAIN SYNDROME
     Dosage: UNK
  42. FENTANYL. [Suspect]
     Active Substance: FENTANYL
     Indication: COMPLEX REGIONAL PAIN SYNDROME
     Dosage: UNK, (1 IN 3 D)
     Route: 062
  43. KETAMINE [Suspect]
     Active Substance: KETAMINE
     Indication: COMPLEX REGIONAL PAIN SYNDROME
     Dosage: 50 MG, 25 MG,1 IN 12 HR
     Route: 048
  44. LIDOCAINE. [Suspect]
     Active Substance: LIDOCAINE
     Indication: COMPLEX REGIONAL PAIN SYNDROME
     Dosage: UNK
     Route: 061
  45. OXYCODONE [Suspect]
     Active Substance: OXYCODONE
     Dosage: 50 MG (AS REQUIRED (50 MG)
  46. PREGABALIN. [Suspect]
     Active Substance: PREGABALIN
     Dosage: 150 MG
  47. EUCALYPTUS OIL [Suspect]
     Active Substance: EUCALYPTUS OIL
     Indication: COMPLEX REGIONAL PAIN SYNDROME
     Dosage: UNK
  48. ASPIRIN. [Suspect]
     Active Substance: ASPIRIN
     Indication: COMPLEX REGIONAL PAIN SYNDROME
     Dosage: UNK
  49. BUPROPION. [Suspect]
     Active Substance: BUPROPION
     Indication: COMPLEX REGIONAL PAIN SYNDROME
     Dosage: UNK
  50. AMITRIPTYLINE [Suspect]
     Active Substance: AMITRIPTYLINE
     Dosage: 150 MG
  51. CITALOPRAM [Suspect]
     Active Substance: CITALOPRAM HYDROBROMIDE
     Indication: COMPLEX REGIONAL PAIN SYNDROME
     Dosage: UNK
  52. HYDROMORPHONE [Suspect]
     Active Substance: HYDROMORPHONE
     Indication: COMPLEX REGIONAL PAIN SYNDROME
     Dosage: UNK
  53. KETOROLAC [Suspect]
     Active Substance: KETOROLAC TROMETHAMINE
     Indication: COMPLEX REGIONAL PAIN SYNDROME
     Dosage: UNK
  54. LIDOCAINE. [Suspect]
     Active Substance: LIDOCAINE
     Dosage: UNK
     Route: 062
  55. MORPHINE [Suspect]
     Active Substance: MORPHINE
     Indication: COMPLEX REGIONAL PAIN SYNDROME
     Dosage: UNK
  56. NORTRIPTYLINE [Suspect]
     Active Substance: NORTRIPTYLINE
     Indication: COMPLEX REGIONAL PAIN SYNDROME
     Dosage: UNK
  57. DULOXETINE. [Suspect]
     Active Substance: DULOXETINE
     Indication: COMPLEX REGIONAL PAIN SYNDROME
     Dosage: UNK
  58. CARBAMAZEPINE. [Suspect]
     Active Substance: CARBAMAZEPINE
     Indication: COMPLEX REGIONAL PAIN SYNDROME
     Dosage: UNK

REACTIONS (3)
  - Therapy non-responder [Unknown]
  - Weight increased [Unknown]
  - Immune thrombocytopenia [Unknown]
